FAERS Safety Report 7792048-4 (Version None)
Quarter: 2011Q4

REPORT INFORMATION
  Report Type: 
  Country: None (occurrence: None)
  Receive Date: 20111003
  Receipt Date: 20110927
  Transmission Date: 20120403
  Serious: Yes (Hospitalization)
  Sender: FDA-Public Use
  Company Number: US-AMGEN-USASP2011050035

PATIENT
  Age: 63 Year
  Sex: Female

DRUGS (1)
  1. ENBREL [Suspect]
     Indication: RHEUMATOID ARTHRITIS
     Dosage: 50 MG, QWK
     Dates: start: 20071217

REACTIONS (12)
  - FATIGUE [None]
  - DECREASED IMMUNE RESPONSIVENESS [None]
  - CHEST PAIN [None]
  - TACHYCARDIA [None]
  - NAUSEA [None]
  - THERAPEUTIC RESPONSE DECREASED [None]
  - BLOOD PRESSURE DECREASED [None]
  - PAIN [None]
  - PARAESTHESIA [None]
  - DIZZINESS [None]
  - MALAISE [None]
  - INJECTION SITE HAEMATOMA [None]
